FAERS Safety Report 6528126-7 (Version None)
Quarter: 2010Q1

REPORT INFORMATION
  Report Type: 
  Country: None (occurrence: None)
  Receive Date: 20100106
  Receipt Date: 20091228
  Transmission Date: 20100710
  Serious: Yes (Other)
  Sender: FDA-Public Use
  Company Number: NO-JNJFOC-20091207416

PATIENT
  Sex: Female

DRUGS (11)
  1. REMICADE [Suspect]
     Indication: CROHN'S DISEASE
     Dosage: 3-4 YEARS
     Route: 042
  2. IMUREL [Suspect]
     Indication: CROHN'S DISEASE
  3. HUMIRA [Suspect]
     Indication: CROHN'S DISEASE
  4. VIVAL [Concomitant]
  5. VAGIFEM [Concomitant]
     Route: 067
  6. RANITIDINE HCL [Concomitant]
     Dosage: ^1+1 WHEN NEEDED^
  7. IMODIUM [Concomitant]
     Dosage: 2MG 1-3 MAXIMUM 8 TABLETS DAILY
  8. VENTOLIN [Concomitant]
     Dosage: 0.2MG 1-2 INHALATIONS AS NEEDED MAXIMUN 8
     Route: 055
  9. ZOPICLONE [Concomitant]
  10. BETOLVEX [Concomitant]
     Indication: VITAMIN B COMPLEX DEFICIENCY
  11. QUESTRAN [Concomitant]

REACTIONS (2)
  - BASAL CELL CARCINOMA [None]
  - THERAPEUTIC RESPONSE DECREASED [None]
